FAERS Safety Report 5731415-7 (Version None)
Quarter: 2008Q2

REPORT INFORMATION
  Report Type: 
  Country: None (occurrence: None)
  Receive Date: 20080506
  Receipt Date: 20080506
  Transmission Date: 20081010
  Serious: No
  Sender: FDA-Public Use
  Company Number: None

PATIENT
  Age: 77 Year
  Sex: Female
  Weight: 73.3013 kg

DRUGS (1)
  1. CATAPRES-TTS-2 [Suspect]
     Indication: HYPERTENSION
     Dates: start: 20080420

REACTIONS (2)
  - APPLICATION SITE ERYTHEMA [None]
  - DRUG HYPERSENSITIVITY [None]
